FAERS Safety Report 24050052 (Version 2)
Quarter: 2024Q3

REPORT INFORMATION
  Report Type: Spontaneous
  Country: KR (occurrence: KR)
  Receive Date: 20240704
  Receipt Date: 20240712
  Transmission Date: 20241017
  Serious: Yes (Death, Hospitalization)
  Sender: ROCHE
  Company Number: KR-ROCHE-10000010986

PATIENT
  Age: 57 Year
  Sex: Male
  Weight: 68 kg

DRUGS (10)
  1. ERLOTINIB HYDROCHLORIDE [Suspect]
     Active Substance: ERLOTINIB HYDROCHLORIDE
     Indication: Myalgia
     Route: 065
  2. SORAFENIB [Suspect]
     Active Substance: SORAFENIB
     Indication: Hepatic cancer
     Route: 065
  3. DIFLUCORTOLONE VALERATE [Concomitant]
     Active Substance: DIFLUCORTOLONE VALERATE
  4. ISOCONAZOLE NITRATE [Concomitant]
     Active Substance: ISOCONAZOLE NITRATE
  5. SODIUM BICARBONATE [Concomitant]
     Active Substance: SODIUM BICARBONATE
  6. URSODIOL [Concomitant]
     Active Substance: URSODIOL
  7. OXYCODONE [Concomitant]
     Active Substance: OXYCODONE
  8. GLYCERYL MONOSTEARATE [Concomitant]
     Active Substance: GLYCERYL MONOSTEARATE
  9. NERISONE [Concomitant]
     Active Substance: DIFLUCORTOLONE VALERATE
  10. ASCORBIC ACID [Concomitant]
     Active Substance: ASCORBIC ACID

REACTIONS (5)
  - Acute kidney injury [Fatal]
  - Pneumonia [Fatal]
  - Mental disorder [Fatal]
  - Sepsis [Fatal]
  - Disseminated intravascular coagulation [Fatal]

NARRATIVE: CASE EVENT DATE: 20110107
